FAERS Safety Report 24572788 (Version 1)
Quarter: 2024Q4

REPORT INFORMATION
  Report Type: Spontaneous
  Country: AT (occurrence: AT)
  Receive Date: 20241101
  Receipt Date: 20241101
  Transmission Date: 20250115
  Serious: Yes (Other)
  Sender: AMGEN
  Company Number: AT-AMGEN-AUTSP2024213629

PATIENT
  Age: 48 Year
  Sex: Male

DRUGS (1)
  1. PROLIA [Suspect]
     Active Substance: DENOSUMAB
     Indication: Osteoporosis
     Dosage: 60 MILLIGRAM
     Route: 065

REACTIONS (6)
  - Osteonecrosis [Unknown]
  - Femur fracture [Unknown]
  - Radius fracture [Unknown]
  - Humerus fracture [Unknown]
  - Tibia fracture [Unknown]
  - Maisonneuve fracture [Unknown]
